FAERS Safety Report 4336023-0 (Version None)
Quarter: 2004Q2

REPORT INFORMATION
  Report Type: 
  Country: None (occurrence: None)
  Receive Date: 20040406
  Receipt Date: 20040324
  Transmission Date: 20050107
  Serious: Yes (Life-Threatening)
  Sender: FDA-Public Use
  Company Number: 2003163125FR

PATIENT
  Age: 65 Year
  Sex: Male
  Weight: 58 kg

DRUGS (9)
  1. SOLU-MEDROL [Suspect]
     Indication: EOSINOPHILIA
     Dosage: UNK, UNK, IV
     Route: 042
     Dates: start: 20030311
  2. CELESTONE [Suspect]
     Indication: ASTHMA
     Dosage: 0.5 MG, QD, ORAL
     Route: 048
     Dates: end: 20030228
  3. PREDNISONE TAB [Suspect]
     Dosage: 60 MG, QD, ORAL
     Route: 048
     Dates: start: 20030315
  4. ROFECOXIB [Suspect]
     Dosage: 1 DF, QD, ORAL
     Route: 048
  5. BRICANYL [Concomitant]
  6. ATROVENT [Concomitant]
  7. SERETIDE MITE (FLUTICASONE PROPIONATE) [Concomitant]
  8. HYPERIUM (RILMENIDINE) [Concomitant]
  9. AMARYL [Concomitant]

REACTIONS (8)
  - CONFUSIONAL STATE [None]
  - HAEMODYNAMIC INSTABILITY [None]
  - LOCALISED INFECTION [None]
  - QUADRIPLEGIA [None]
  - RESPIRATORY DISTRESS [None]
  - SCIATICA [None]
  - SPONDYLITIS [None]
  - STAPHYLOCOCCAL SEPSIS [None]
